FAERS Safety Report 7897918-4 (Version None)
Quarter: 2011Q4

REPORT INFORMATION
  Report Type: 
  Country: None (occurrence: None)
  Receive Date: 20111107
  Receipt Date: 20111028
  Transmission Date: 20120403
  Serious: Yes (Death)
  Sender: FDA-Public Use
  Company Number: GB-PFIZER INC-199757333PHANOV

PATIENT
  Sex: Male

DRUGS (1)
  1. GENOTROPIN [Suspect]
     Indication: DWARFISM
     Dosage: 4.2 IU, 1X/DAY
     Route: 058
     Dates: start: 19950816, end: 19961208

REACTIONS (1)
  - SUDDEN DEATH [None]
